FAERS Safety Report 5708782-3 (Version None)
Quarter: 2008Q2

REPORT INFORMATION
  Report Type: 
  Country: None (occurrence: None)
  Receive Date: 20080416
  Receipt Date: 20080401
  Transmission Date: 20081010
  Serious: Yes (Life-Threatening, Hospitalization)
  Sender: FDA-Public Use
  Company Number: 2008S1005526

PATIENT
  Age: 69 Year
  Sex: Male

DRUGS (11)
  1. FLOXACILLIN SODIUM [Suspect]
     Indication: POST PROCEDURAL INFECTION
     Dosage: 1 GM; 4 TIMES A DAY
     Dates: start: 20071127, end: 20071217
  2. ATORVASTATIN CALCIUM [Suspect]
     Indication: DRUG USE FOR UNKNOWN INDICATION
     Dosage: 40 MH; DAILY
     Dates: end: 20071217
  3. DICLOFENAC SODIUM [Suspect]
     Indication: PROCEDURAL PAIN
     Dosage: 100 MG; DAILY
     Dates: start: 20071127, end: 20071203
  4. EZETIMIBE [Suspect]
     Indication: DRUG USE FOR UNKNOWN INDICATION
     Dosage: 10 MG; DAILY
     Dates: end: 20071217
  5. S. FUSIDATE (FUSIDATE SODIUM) [Suspect]
     Indication: POST PROCEDURAL INFECTION
     Dosage: 750 MG; 3 TIMES A DAY
     Dates: start: 20071127, end: 20071217
  6. ASPIRIN [Concomitant]
  7. ATENOLOL [Concomitant]
  8. ESOMEPRAZOLE [Concomitant]
  9. FOLIC ACID [Concomitant]
  10. RAMIPRIL [Concomitant]
  11. TRAMADOL HCL [Concomitant]

REACTIONS (2)
  - RENAL FAILURE ACUTE [None]
  - RHABDOMYOLYSIS [None]
